FAERS Safety Report 5060560-7 (Version None)
Quarter: 2006Q2

REPORT INFORMATION
  Report Type: 
  Country: None (occurrence: None)
  Receive Date: 20060630
  Receipt Date: 20060410
  Transmission Date: 20061013
  Serious: Yes (Hospitalization)
  Sender: FDA-Public Use
  Company Number: VISP-PR-0604S-0217

PATIENT
  Age: 67 Year
  Sex: Female
  Weight: 58.9676 kg

DRUGS (3)
  1. VISIPAQUE [Suspect]
     Indication: ABDOMINAL PAIN
     Dosage: 120 ML, SINGLE DOSE, I.V.
     Route: 042
     Dates: start: 20060401, end: 20060401
  2. VISIPAQUE [Suspect]
     Indication: URINARY TRACT INFECTION
     Dosage: 120 ML, SINGLE DOSE, I.V.
     Route: 042
     Dates: start: 20060401, end: 20060401
  3. VISIPAQUE [Suspect]

REACTIONS (1)
  - MYOCARDIAL INFARCTION [None]
